FAERS Safety Report 4440796-6 (Version None)
Quarter: 2004Q3

REPORT INFORMATION
  Report Type: 
  Country: None (occurrence: None)
  Receive Date: 20040831
  Receipt Date: 20040818
  Transmission Date: 20050211
  Serious: Yes (Hospitalization)
  Sender: FDA-Public Use
  Company Number: 2004-02853

PATIENT
  Age: 55 Year
  Sex: Male

DRUGS (1)
  1. IMMUCYST (BCG - IT (CONNAUGHT)), AVENTIS PASTEUR LTD., LOT NOT REP, NR [Suspect]
     Indication: BLADDER CANCER
     Dosage: IN., BLADDER

REACTIONS (3)
  - HEPATITIS GRANULOMATOUS [None]
  - HEPATOCELLULAR DAMAGE [None]
  - MILIARY PNEUMONIA [None]
